FAERS Safety Report 13339329 (Version 4)
Quarter: 2017Q2

REPORT INFORMATION
  Report Type: Report from Study
  Country: US (occurrence: US)
  Receive Date: 20170315
  Receipt Date: 20170530
  Transmission Date: 20170830
  Serious: Yes (Other)
  Sender: FDA-Public Use
  Company Number: US-GILEAD-2016-0246013

PATIENT
  Age: 53 Year
  Sex: Female

DRUGS (5)
  1. ADCIRCA [Concomitant]
     Active Substance: TADALAFIL
  2. UPTRAVI [Suspect]
     Active Substance: SELEXIPAG
     Indication: PRODUCT USED FOR UNKNOWN INDICATION
     Dosage: 600 UG, UNK
     Route: 065
     Dates: start: 20170215
  3. AMBRISENTAN [Suspect]
     Active Substance: AMBRISENTAN
     Indication: PRODUCT USED FOR UNKNOWN INDICATION
     Dosage: 5 MG, QD
     Route: 065
     Dates: start: 20161121
  4. UPTRAVI [Suspect]
     Active Substance: SELEXIPAG
     Dosage: 200 UG, UNK
     Route: 065
  5. AMLODIPINE [Concomitant]
     Active Substance: AMLODIPINE BESYLATE

REACTIONS (17)
  - Decreased appetite [Unknown]
  - Pain in extremity [Unknown]
  - Weight decreased [Unknown]
  - Cardiac flutter [Unknown]
  - Peripheral swelling [Unknown]
  - Palpitations [Unknown]
  - Chest pain [Unknown]
  - Syncope [Recovered/Resolved]
  - Pain in jaw [Unknown]
  - Headache [Unknown]
  - Nausea [Unknown]
  - Feeling hot [Unknown]
  - Fatigue [Unknown]
  - Dizziness [Unknown]
  - Renal disorder [Not Recovered/Not Resolved]
  - Swelling face [Unknown]
  - Diarrhoea [Unknown]
